FAERS Safety Report 4832493-X (Version None)
Quarter: 2005Q4

REPORT INFORMATION
  Report Type: 
  Country: None (occurrence: None)
  Receive Date: 20051117
  Receipt Date: 20051031
  Transmission Date: 20060501
  Serious: Yes (Hospitalization)
  Sender: FDA-Public Use
  Company Number: 1848

PATIENT
  Age: 84 Year
  Sex: Female
  Weight: 76.2043 kg

DRUGS (6)
  1. ETODOLAC [Suspect]
     Indication: OSTEOARTHRITIS
     Dosage: 400MG, TID, PO
     Route: 048
     Dates: start: 20051026, end: 20051028
  2. LYRICA [Concomitant]
  3. BISOPROLOL [Concomitant]
  4. PAROXETINE HCL [Concomitant]
  5. ZOCOR [Concomitant]
  6. MICARDIS [Concomitant]

REACTIONS (9)
  - CARBON DIOXIDE INCREASED [None]
  - CONFUSIONAL STATE [None]
  - DIZZINESS [None]
  - DYSKINESIA [None]
  - FEELING DRUNK [None]
  - GAIT DISTURBANCE [None]
  - HALLUCINATION [None]
  - MENTAL STATUS CHANGES [None]
  - PO2 DECREASED [None]
